FAERS Safety Report 12887365 (Version 1)
Quarter: 2016Q4

REPORT INFORMATION
  Report Type: Report from Study
  Country: US (occurrence: US)
  Receive Date: 20161026
  Receipt Date: 20161026
  Transmission Date: 20170207
  Serious: Yes (Death)
  Sender: FDA-Public Use
  Company Number: US-JAZZ-2016-US-015926

PATIENT
  Age: 20 Month
  Sex: Male
  Weight: 14 kg

DRUGS (10)
  1. ZOFRAN [Concomitant]
     Active Substance: ONDANSETRON HYDROCHLORIDE
     Indication: NAUSEA
     Dosage: 1.04 MG, QD
     Route: 048
     Dates: start: 20140103, end: 20140714
  2. DEFIBROTIDE (INV) [Suspect]
     Active Substance: DEFIBROTIDE SODIUM
     Indication: VENOOCCLUSIVE LIVER DISEASE
     Dosage: 280 MG, QD
     Dates: start: 20140501, end: 20140602
  3. ZANTAC [Concomitant]
     Active Substance: RANITIDINE HYDROCHLORIDE
     Indication: GASTROOESOPHAGEAL REFLUX DISEASE
     Dosage: 19.5 MG, QD
     Route: 048
     Dates: start: 20140202, end: 20140714
  4. FLAGYL [Concomitant]
     Active Substance: METRONIDAZOLE\METRONIDAZOLE HYDROCHLORIDE
     Indication: ANTIBIOTIC PROPHYLAXIS
     Dosage: 185 MG, QD
     Route: 048
     Dates: start: 20140404, end: 20140714
  5. KAY CIEL [Concomitant]
     Active Substance: POTASSIUM CHLORIDE
     Indication: BLOOD POTASSIUM DECREASED
     Dosage: 10 MEQ, QD
     Route: 048
     Dates: start: 20140202, end: 20140714
  6. DEXAMETHASONE. [Concomitant]
     Active Substance: DEXAMETHASONE
     Indication: ANTIINFLAMMATORY THERAPY
     Dosage: 1.2 MG, QD
     Route: 048
     Dates: start: 20140202, end: 20140714
  7. BACTRIM [Concomitant]
     Active Substance: SULFAMETHOXAZOLE\TRIMETHOPRIM
     Indication: ANTIBIOTIC THERAPY
     Dosage: 40 ^MG/JML^, QD
     Route: 048
     Dates: start: 20130101, end: 20140714
  8. ZOFRAN [Concomitant]
     Active Substance: ONDANSETRON HYDROCHLORIDE
     Indication: VOMITING
  9. CASPOFUNGIN [Concomitant]
     Active Substance: CASPOFUNGIN
     Indication: ANTIFUNGAL TREATMENT
     Dosage: 20 MG, QD
     Route: 042
     Dates: start: 20140103, end: 20140714
  10. RIBAVIRIN. [Concomitant]
     Active Substance: RIBAVIRIN
     Indication: VIRAL INFECTION
     Dosage: 88 MG, QD
     Route: 048
     Dates: start: 20140404, end: 20140714

REACTIONS (2)
  - Cytomegalovirus infection [Fatal]
  - Diarrhoea [Fatal]

NARRATIVE: CASE EVENT DATE: 20140531
